FAERS Safety Report 7408596-2 (Version None)
Quarter: 2011Q1

REPORT INFORMATION
  Report Type: 
  Country: None (occurrence: None)
  Receive Date: 20110301
  Receipt Date: 20100901
  Transmission Date: 20110831
  Serious: Yes (Other)
  Sender: FDA-Public Use
  Company Number: US-JNJFOC-20100903016

PATIENT
  Age: 11 Month
  Sex: Male
  Weight: 10.4327 kg

DRUGS (1)
  1. CONCENTRATED MOTRIN INFANTS DROPS [Suspect]
     Indication: TEETHING
     Dosage: 1 IN 1 AS NECESSARY, ORAL
     Route: 048
     Dates: start: 20100428

REACTIONS (1)
  - HYPERSENSITIVITY [None]
